FAERS Safety Report 7982914-9 (Version None)
Quarter: 2011Q4

REPORT INFORMATION
  Report Type: 
  Country: None (occurrence: None)
  Receive Date: 20111215
  Receipt Date: 20111208
  Transmission Date: 20120403
  Serious: Yes (Hospitalization, Other)
  Sender: FDA-Public Use
  Company Number: PHHY2011US107142

PATIENT
  Age: 69 Year
  Sex: Male

DRUGS (8)
  1. EPLERENONE [Concomitant]
  2. FUROSEMIDE [Concomitant]
  3. ATORVASTATIN [Concomitant]
  4. WARFARIN SODIUM [Concomitant]
  5. CARVEDILOL [Suspect]
  6. LEVOTHYROXINE SODIUM [Concomitant]
     Dosage: 25 MG, UNK
  7. LEVOTHYROXINE SODIUM [Concomitant]
     Dosage: 50 MG, UNK
  8. LISINOPRIL [Concomitant]

REACTIONS (7)
  - RESPIRATORY TRACT INFECTION [None]
  - CHRONIC OBSTRUCTIVE PULMONARY DISEASE [None]
  - CARDIAC FAILURE [None]
  - URINARY RETENTION [None]
  - BENIGN PROSTATIC HYPERPLASIA [None]
  - RESPIRATORY DISTRESS [None]
  - WHEEZING [None]
